FAERS Safety Report 7892170-8 (Version None)
Quarter: 2011Q4

REPORT INFORMATION
  Report Type: 
  Country: None (occurrence: None)
  Receive Date: 20111103
  Receipt Date: 20111025
  Transmission Date: 20120403
  Serious: Yes (Hospitalization, Other)
  Sender: FDA-Public Use
  Company Number: US-ASTRAZENECA-2011SE63472

PATIENT
  Age: 73 Year
  Sex: Female

DRUGS (1)
  1. NEXIUM [Suspect]
     Route: 048

REACTIONS (8)
  - OESOPHAGEAL DISORDER [None]
  - DYSPHAGIA [None]
  - HERNIA [None]
  - MALAISE [None]
  - HYPERTENSION [None]
  - THYROID DISORDER [None]
  - GASTROOESOPHAGEAL REFLUX DISEASE [None]
  - ALOPECIA [None]
